FAERS Safety Report 7494908-0 (Version None)
Quarter: 2011Q2

REPORT INFORMATION
  Report Type: 
  Country: None (occurrence: None)
  Receive Date: 20110520
  Receipt Date: 20110505
  Transmission Date: 20111010
  Serious: Yes (Other)
  Sender: FDA-Public Use
  Company Number: IT-BAYER-2011-037156

PATIENT
  Age: 15 Year
  Sex: Female

DRUGS (1)
  1. ASPIRIN [Suspect]
     Indication: PYREXIA
     Dosage: 1 DF, ONCE
     Route: 048
     Dates: start: 20110418, end: 20110418

REACTIONS (1)
  - ANAPHYLACTIC REACTION [None]
